FAERS Safety Report 8973741 (Version 1)
Quarter: 2012Q4

REPORT INFORMATION
  Report Type: 
  Country: US (occurrence: US)
  Receive Date: 20121219
  Receipt Date: 20121219
  Transmission Date: 20130627
  Serious: Yes (Other)
  Sender: FDA-Public Use
  Company Number: US-JNJFOC-20121204570

PATIENT

DRUGS (4)
  1. RISPERIDONE [Suspect]
     Indication: BIPOLAR DISORDER
     Route: 065
  2. LITHIUM [Suspect]
     Indication: BIPOLAR DISORDER
     Route: 065
  3. DIVALPROEX SODIUM [Suspect]
     Indication: BIPOLAR DISORDER
  4. CARBAMAZEPINE [Suspect]
     Indication: BIPOLAR DISORDER
     Route: 065

REACTIONS (1)
  - Suicide attempt [Unknown]
